FAERS Safety Report 17910790 (Version 1)
Quarter: 2020Q2

REPORT INFORMATION
  Report Type: Report from Study
  Country: CN (occurrence: CN)
  Receive Date: 20200618
  Receipt Date: 20200618
  Transmission Date: 20200714
  Serious: Yes (Death, Other)
  Sender: FDA-Public Use
  Company Number: CN-ROCHE-2619959

PATIENT

DRUGS (8)
  1. ACYCLOVIR [ACICLOVIR] [Concomitant]
     Active Substance: ACYCLOVIR
     Indication: ANTIVIRAL TREATMENT
     Dosage: (INTRAVENOUS ADMINISTRATION OR PER ORAL)
     Route: 065
  2. ANTITHYMOCYTE IMMUNOGLOBULIN [Concomitant]
     Active Substance: THYMOCYTE IMMUNE GLOBULIN NOS
     Indication: GRAFT VERSUS HOST DISEASE
     Dosage: THYMOGLOBULINE 10 MG/KG OR FRESENIUS 30 MG/KG).
     Route: 041
  3. FLUDARABINE [Concomitant]
     Active Substance: FLUDARABINE PHOSPHATE
     Indication: GRAFT VERSUS HOST DISEASE
     Dosage: 150-200 MG/M2
     Route: 041
  4. CYCLOPHOSPHAMIDE. [Concomitant]
     Active Substance: CYCLOPHOSPHAMIDE
     Indication: GRAFT VERSUS HOST DISEASE
     Route: 041
  5. CYCLOSPORINE. [Concomitant]
     Active Substance: CYCLOSPORINE
  6. RITUXIMAB. [Suspect]
     Active Substance: RITUXIMAB
     Indication: ANTIVIRAL TREATMENT
     Dosage: 1-4 TIMES
     Route: 042
  7. FOSCARNET SODIUM. [Concomitant]
     Active Substance: FOSCARNET SODIUM
     Route: 042
  8. METHOTREXATE. [Concomitant]
     Active Substance: METHOTREXATE

REACTIONS (8)
  - Infection [Fatal]
  - Tonsillitis [Unknown]
  - Intentional product use issue [Unknown]
  - Encephalitis viral [Fatal]
  - Off label use [Unknown]
  - Post transplant lymphoproliferative disorder [Fatal]
  - Adenoidal hypertrophy [Unknown]
  - Venoocclusive disease [Fatal]
